FAERS Safety Report 21550331 (Version 1)
Quarter: 2022Q4

REPORT INFORMATION
  Report Type: Spontaneous
  Country: GB (occurrence: None)
  Receive Date: 20221103
  Receipt Date: 20221103
  Transmission Date: 20230113
  Serious: No
  Sender: FDA-Public Use
  Company Number: None

PATIENT
  Sex: 0

DRUGS (1)
  1. NEXAVAR [Suspect]
     Active Substance: SORAFENIB

REACTIONS (9)
  - Rash [None]
  - Dry skin [None]
  - Skin lesion [None]
  - Blister [None]
  - Skin exfoliation [None]
  - Stomatitis [None]
  - Alopecia [None]
  - Decreased appetite [None]
  - Neoplasm progression [None]
